FAERS Safety Report 22892278 (Version 3)
Quarter: 2024Q3

REPORT INFORMATION
  Report Type: Spontaneous
  Country: JP (occurrence: JP)
  Receive Date: 20230901
  Receipt Date: 20240708
  Transmission Date: 20241017
  Serious: Yes (Hospitalization, Other)
  Sender: GLAXOSMITHKLINE
  Company Number: JP-GLAXOSMITHKLINE-JP2023JPN117486

PATIENT

DRUGS (1)
  1. VALACYCLOVIR HYDROCHLORIDE [Suspect]
     Active Substance: VALACYCLOVIR HYDROCHLORIDE
     Indication: Herpes zoster
     Dosage: 3000 MG, QD

REACTIONS (9)
  - Nephropathy toxic [Unknown]
  - Toxic encephalopathy [Unknown]
  - Renal impairment [Unknown]
  - Altered state of consciousness [Unknown]
  - Diarrhoea [Unknown]
  - Oliguria [Unknown]
  - Abdominal distension [Unknown]
  - Dysuria [Unknown]
  - Dehydration [Unknown]
